FAERS Safety Report 9429151 (Version 5)
Quarter: 2013Q4

REPORT INFORMATION
  Report Type: Spontaneous
  Country: FR (occurrence: FR)
  Receive Date: 20130730
  Receipt Date: 20131028
  Transmission Date: 20140711
  Serious: Yes (Death, Hospitalization, Other)
  Sender: FDA-Public Use
  Company Number: FR-PFIZER INC-2013216900

PATIENT
  Age: 53 Year
  Sex: Female

DRUGS (19)
  1. VANCOMYCIN HCL [Suspect]
     Dosage: UNK
     Route: 042
     Dates: start: 2013, end: 20130624
  2. VANCOMYCIN HCL [Suspect]
     Dosage: UNK
     Route: 042
  3. INIPOMP [Suspect]
     Dosage: UNK
     Route: 042
     Dates: start: 201304, end: 20130629
  4. CLAVENTIN [Suspect]
     Dosage: UNK
     Route: 042
     Dates: start: 20130623
  5. CYMEVAN [Suspect]
     Indication: HUMAN HERPESVIRUS 6 INFECTION
     Dosage: 450 MG, 2X/DAY
     Route: 042
     Dates: start: 20130603, end: 20130627
  6. BACTRIM [Suspect]
     Dosage: UNK
     Route: 048
     Dates: start: 20130624, end: 20130627
  7. AMIKACIN [Suspect]
     Dosage: UNK
     Route: 042
     Dates: start: 2013, end: 20130624
  8. NEORAL [Suspect]
     Dosage: UNK
     Route: 048
     Dates: start: 201305
  9. CORTANCYL [Suspect]
     Dosage: UNK
     Route: 048
     Dates: start: 20130426
  10. INSULIN [Suspect]
     Dosage: UNK
     Route: 058
     Dates: start: 201304
  11. INEXIUM [Suspect]
     Dosage: UNK
     Route: 065
  12. NORADRENALINE [Concomitant]
     Dosage: UNK
     Dates: start: 201306
  13. SUFENTANIL [Concomitant]
     Dosage: UNK
     Dates: start: 201306
  14. MIDAZOLAM [Concomitant]
     Dosage: UNK
     Dates: start: 201306
  15. LEVEMIR [Concomitant]
     Dosage: UNK
     Dates: end: 20130522
  16. AMBISOME [Concomitant]
     Dosage: UNK
     Dates: start: 20130522
  17. ANCOTIL [Concomitant]
     Dosage: UNK
     Dates: end: 20130522
  18. CELLCEPT [Concomitant]
     Dosage: UNK
     Dates: end: 20130603
  19. AVLOCARDYL [Concomitant]
     Dosage: UNK

REACTIONS (5)
  - Shock [Fatal]
  - Neutropenia [Fatal]
  - Diarrhoea [Fatal]
  - Anaemia [Recovered/Resolved]
  - Thrombocytopenia [Recovered/Resolved]
